FAERS Safety Report 5204451-7 (Version None)
Quarter: 2007Q1

REPORT INFORMATION
  Report Type: 
  Country: None (occurrence: None)
  Receive Date: 20070110
  Receipt Date: 20060330
  Transmission Date: 20070707
  Serious: No
  Sender: FDA-Public Use
  Company Number: US-BRISTOL-MYERS SQUIBB COMPANY-13331806

PATIENT
  Age: 36 Year
  Sex: Male
  Weight: 84 kg

DRUGS (5)
  1. ABILIFY [Suspect]
     Indication: BIPOLAR DISORDER
     Dosage: STARTED IN APR OR MAY 2005 AT 10 MG/D-} INC. TO 15 MG/D -} DEC. TO 7.5 MG/D-} INCREASED TO 15 MG/D
     Route: 048
     Dates: start: 20050401
  2. DEPAKOTE [Concomitant]
  3. AMANTADINE HCL [Concomitant]
  4. VITAMIN E [Concomitant]
  5. FISH OIL [Concomitant]

REACTIONS (2)
  - DELUSION [None]
  - DYSKINESIA [None]
